FAERS Safety Report 12250368 (Version 2)
Quarter: 2016Q2

REPORT INFORMATION
  Report Type: Spontaneous
  Country: IT (occurrence: IT)
  Receive Date: 20160408
  Receipt Date: 20160426
  Transmission Date: 20160815
  Serious: Yes (Hospitalization)
  Sender: FDA-Public Use
  Company Number: PHHY2016IT040598

PATIENT
  Age: 57 Year
  Sex: Male

DRUGS (2)
  1. CLOZAPINA HEXAL [Suspect]
     Active Substance: CLOZAPINE
     Indication: PSYCHOTIC DISORDER
     Dosage: 500 MG, QD
     Route: 048
     Dates: start: 20151030, end: 20160226
  2. CLOPIXOL                           /00876701/ [Concomitant]
     Active Substance: ZUCLOPENTHIXOL ACETATE
     Indication: PRODUCT USED FOR UNKNOWN INDICATION
     Dosage: 30 GTT, UNK
     Route: 048

REACTIONS (2)
  - Antipsychotic drug level below therapeutic [Recovering/Resolving]
  - Drug ineffective [Unknown]

NARRATIVE: CASE EVENT DATE: 20160226
